FAERS Safety Report 19979414 (Version 2)
Quarter: 2021Q4

REPORT INFORMATION
  Report Type: Spontaneous
  Country: ES (occurrence: ES)
  Receive Date: 20211021
  Receipt Date: 20211203
  Transmission Date: 20220303
  Serious: Yes (Other)
  Sender: FDA-Public Use
  Company Number: ES-VELOXIS PHARMACEUTICALS-2021VELES-000732

PATIENT
  Age: 75 Year
  Sex: Male

DRUGS (2)
  1. TACROLIMUS [Suspect]
     Active Substance: TACROLIMUS
     Indication: Immunosuppressant drug therapy
     Dosage: UNK
     Route: 065
     Dates: start: 2013
  2. TACROLIMUS [Suspect]
     Active Substance: TACROLIMUS
     Indication: Renal transplant
     Dosage: UNK

REACTIONS (8)
  - Hyperaemia [Unknown]
  - Splinter haemorrhages [Unknown]
  - Pupillary reflex impaired [Unknown]
  - Papilloedema [Unknown]
  - Optic neuropathy [Unknown]
  - Vision blurred [Unknown]
  - Blindness unilateral [Unknown]
  - Optic atrophy [Unknown]

NARRATIVE: CASE EVENT DATE: 20150101
